FAERS Safety Report 23550145 (Version 1)
Quarter: 2024Q1

REPORT INFORMATION
  Report Type: Spontaneous
  Country: US (occurrence: None)
  Receive Date: 20240221
  Receipt Date: 20240221
  Transmission Date: 20240410
  Serious: Yes (Hospitalization)
  Sender: FDA-Public Use
  Company Number: None

PATIENT
  Age: 52 Year
  Sex: Female
  Weight: 66.5 kg

DRUGS (3)
  1. FEDRATINIB [Suspect]
     Active Substance: FEDRATINIB
     Indication: Metastatic malignant melanoma
     Dosage: 400 MG 1 X DAILY PO?
     Route: 048
     Dates: start: 20240215
  2. ONDANSETRON [Suspect]
     Active Substance: ONDANSETRON
     Indication: Prophylaxis of nausea and vomiting
     Dosage: 8MG BEFORE FEDR DOS PO
     Route: 048
  3. BMT [Concomitant]

REACTIONS (2)
  - Urinary tract infection [None]
  - Escherichia test positive [None]

NARRATIVE: CASE EVENT DATE: 20240217
